FAERS Safety Report 10130203 (Version 1)
Quarter: 2014Q2

REPORT INFORMATION
  Report Type: Spontaneous
  Country: US (occurrence: None)
  Receive Date: 20140425
  Receipt Date: 20140425
  Transmission Date: 20141212
  Serious: Yes (Other)
  Sender: FDA-Public Use
  Company Number: None

PATIENT
  Age: 69 Year
  Sex: Female
  Weight: 81.65 kg

DRUGS (1)
  1. BYDUREON [Suspect]
     Indication: DIABETES MELLITUS
     Dosage: 1X EVERY 7 DAYS INJECTED
     Dates: start: 20140217, end: 20140411

REACTIONS (7)
  - Vomiting [None]
  - Diarrhoea [None]
  - Abdominal pain [None]
  - Asthenia [None]
  - Dizziness [None]
  - Pancreatic disorder [None]
  - Swelling [None]
